FAERS Safety Report 16122459 (Version 1)
Quarter: 2019Q2

REPORT INFORMATION
  Report Type: Spontaneous
  Country: US (occurrence: US)
  Receive Date: 20190326
  Receipt Date: 20190326
  Transmission Date: 20190711
  Serious: Yes (Disabling)
  Sender: FDA-Public Use
  Company Number: None

PATIENT
  Age: 57 Year
  Sex: Male
  Weight: 81 kg

DRUGS (3)
  1. S.O.S. SOAP PADS [Suspect]
     Active Substance: UNSPECIFIED INGREDIENT
     Indication: PROPHYLAXIS
  2. S.O.S. SOAP PADS [Suspect]
     Active Substance: UNSPECIFIED INGREDIENT
     Indication: FOOD POISONING
  3. COUMADIN [Suspect]
     Active Substance: WARFARIN SODIUM
     Indication: THROMBOSIS PROPHYLAXIS

REACTIONS (4)
  - Irritable bowel syndrome [None]
  - Drug interaction [None]
  - Diarrhoea haemorrhagic [None]
  - Exposure to household chemicals [None]

NARRATIVE: CASE EVENT DATE: 20150730
